FAERS Safety Report 9159655 (Version 1)
Quarter: 2013Q1

REPORT INFORMATION
  Report Type: Spontaneous
  Country: US (occurrence: US)
  Receive Date: 20130313
  Receipt Date: 20130313
  Transmission Date: 20140127
  Serious: No
  Sender: FDA-Public Use
  Company Number: US-PFIZER INC-2013083003

PATIENT
  Sex: Male

DRUGS (3)
  1. VIAGRA [Suspect]
     Indication: ERECTILE DYSFUNCTION
     Dosage: 25 MG, UNK
  2. VIAGRA [Suspect]
     Dosage: 75 MG, UNK
  3. VIAGRA [Suspect]
     Dosage: 100 MG, UNK

REACTIONS (1)
  - Drug ineffective [Recovered/Resolved]
